FAERS Safety Report 22285809 (Version 1)
Quarter: 2023Q2

REPORT INFORMATION
  Report Type: Spontaneous
  Country: US (occurrence: US)
  Receive Date: 20230504
  Receipt Date: 20230504
  Transmission Date: 20230722
  Serious: Yes (Hospitalization)
  Sender: FDA-Public Use
  Company Number: US-BIOGEN-2023BI01192376

PATIENT
  Age: 61 Year
  Sex: Female

DRUGS (5)
  1. VUMERITY [Suspect]
     Active Substance: DIROXIMEL FUMARATE
     Indication: Multiple sclerosis
     Dosage: [ON WEEK 1 - TOOK 1 CAPSULE ONCE A DAY]; WEEK 2 -1 CAPSULE TWICE A DAY (CURRENT DOSE).
     Route: 050
     Dates: start: 20230225
  2. VUMERITY [Suspect]
     Active Substance: DIROXIMEL FUMARATE
     Dosage: ON WEEK 1 - TOOK 1 CAPSULE ONCE A DAY.
     Route: 050
  3. VUMERITY [Suspect]
     Active Substance: DIROXIMEL FUMARATE
     Route: 050
     Dates: start: 20230322, end: 20230323
  4. VUMERITY [Suspect]
     Active Substance: DIROXIMEL FUMARATE
     Route: 050
     Dates: end: 20230327
  5. VUMERITY [Suspect]
     Active Substance: DIROXIMEL FUMARATE
     Route: 050
     Dates: start: 20230303, end: 20230324

REACTIONS (9)
  - Multiple sclerosis relapse [Recovered/Resolved]
  - Oxygen saturation decreased [Unknown]
  - Psychomotor hyperactivity [Unknown]
  - Dyspnoea [Unknown]
  - Insomnia [Recovered/Resolved]
  - Psychomotor hyperactivity [Recovered/Resolved]
  - Hypersensitivity [Recovered/Resolved]
  - Flushing [Unknown]
  - Nausea [Unknown]

NARRATIVE: CASE EVENT DATE: 20230201
